FAERS Safety Report 9540231 (Version 1)
Quarter: 2013Q3

REPORT INFORMATION
  Report Type: Spontaneous
  Country: CA (occurrence: CA)
  Receive Date: 20130920
  Receipt Date: 20130920
  Transmission Date: 20140515
  Serious: Yes (Hospitalization)
  Sender: FDA-Public Use
  Company Number: CA-ELI_LILLY_AND_COMPANY-CA201309004205

PATIENT
  Age: 66 Year
  Sex: Female

DRUGS (12)
  1. ADCIRCA [Suspect]
  2. FLOLAN [Concomitant]
     Indication: PULMONARY ARTERIAL HYPERTENSION
     Dosage: UNK
     Route: 042
     Dates: start: 20121217
  3. BOSENTAN [Concomitant]
  4. ASA [Concomitant]
  5. AMLODIPINE [Concomitant]
  6. SIMVASTATIN [Concomitant]
  7. PANTOLOC                           /01263204/ [Concomitant]
  8. METOPROLOL [Concomitant]
  9. RAMIPRIL [Concomitant]
  10. HYDROXYCHLOROQUINE [Concomitant]
  11. FERROUS FUMARATE [Concomitant]
  12. TYLENOL WITH CODEINE [Concomitant]
     Dosage: UNK, PRN

REACTIONS (1)
  - Medical device complication [Recovered/Resolved]
